FAERS Safety Report 13408124 (Version 1)
Quarter: 2017Q2

REPORT INFORMATION
  Report Type: Spontaneous
  Country: GB (occurrence: GB)
  Receive Date: 20170406
  Receipt Date: 20170406
  Transmission Date: 20170830
  Serious: Yes (Hospitalization, Other)
  Sender: FDA-Public Use
  Company Number: GB-CIPLA LTD.-2017GB04972

PATIENT

DRUGS (4)
  1. DOXORUBICIN [Suspect]
     Active Substance: DOXORUBICIN
     Indication: OVARIAN CANCER
     Dosage: DAILY DOSE: 30 MG/M2, CYCLICAL
     Route: 042
     Dates: start: 20160707
  2. FARLETUZUMAB [Concomitant]
     Active Substance: FARLETUZUMAB
     Indication: OVARIAN CANCER
     Dosage: UNK, ONCE WEEKLY, LOADING DOSE
     Route: 042
     Dates: start: 20160707, end: 201607
  3. CARBOPLATIN. [Suspect]
     Active Substance: CARBOPLATIN
     Indication: OVARIAN CANCER
     Dosage: DAILY DOSE: AUC 5.0 (CYCLICAL)
     Route: 042
     Dates: start: 20160707
  4. FARLETUZUMAB [Concomitant]
     Active Substance: FARLETUZUMAB
     Dosage: UNK, ONCE WEEKLY
     Route: 042
     Dates: start: 201607

REACTIONS (1)
  - Febrile neutropenia [Recovered/Resolved]

NARRATIVE: CASE EVENT DATE: 20161225
